FAERS Safety Report 8517914-3 (Version None)
Quarter: 2012Q3

REPORT INFORMATION
  Report Type: 
  Country: None (occurrence: None)
  Receive Date: 20120718
  Receipt Date: 20110714
  Transmission Date: 20120928
  Serious: No
  Sender: FDA-Public Use
  Company Number: US-BRISTOL-MYERS SQUIBB COMPANY-15903214

PATIENT
  Age: 36 Year
  Sex: Female
  Weight: 64 kg

DRUGS (1)
  1. COUMADIN [Suspect]
     Indication: PULMONARY THROMBOSIS
     Dosage: DOSE DECREASED TO UNK DOSE.STOPPED 1.5 WEEKS AGO
     Route: 048
     Dates: start: 20110501, end: 20110101

REACTIONS (4)
  - FEELING ABNORMAL [None]
  - INTERNATIONAL NORMALISED RATIO INCREASED [None]
  - BLOOD URINE PRESENT [None]
  - HEADACHE [None]
